FAERS Safety Report 23122689 (Version 3)
Quarter: 2024Q4

REPORT INFORMATION
  Report Type: Spontaneous
  Country: US (occurrence: US)
  Receive Date: 20231030
  Receipt Date: 20241106
  Transmission Date: 20250115
  Serious: Yes (Other)
  Sender: UCB
  Company Number: US-UCBSA-2023003811

PATIENT
  Age: 13 Year
  Sex: Female
  Weight: 42 kg

DRUGS (9)
  1. LEVETIRACETAM [Suspect]
     Active Substance: LEVETIRACETAM
     Indication: Epilepsy
  2. LACOSAMIDE [Suspect]
     Active Substance: LACOSAMIDE
     Indication: Epilepsy
  3. PHENYTOIN [Suspect]
     Active Substance: PHENYTOIN
     Indication: Epilepsy
  4. FELBAMATE [Suspect]
     Active Substance: FELBAMATE
     Indication: Epilepsy
  5. OXCARBAZEPINE [Suspect]
     Active Substance: OXCARBAZEPINE
     Indication: Epilepsy
  6. CANNABIDIOL [Suspect]
     Active Substance: CANNABIDIOL
     Indication: Epilepsy
  7. PROPOFOL [Concomitant]
     Active Substance: PROPOFOL
     Indication: Product used for unknown indication
     Dosage: 2 MILLIGRAM/KILOGRAM
  8. PROPOFOL [Concomitant]
     Active Substance: PROPOFOL
     Dosage: 50 ?G/KG/MIN
  9. ROCURONIUM [Concomitant]
     Active Substance: ROCURONIUM BROMIDE
     Indication: Product used for unknown indication
     Dosage: 0.6 MILLIGRAM/KILOGRAM

REACTIONS (2)
  - Seizure [Unknown]
  - Multiple-drug resistance [Unknown]
